FAERS Safety Report 6354012-1 (Version None)
Quarter: 2009Q3

REPORT INFORMATION
  Report Type: 
  Country: None (occurrence: None)
  Receive Date: 20090914
  Receipt Date: 20090903
  Transmission Date: 20100115
  Serious: Yes (Other)
  Sender: FDA-Public Use
  Company Number: US-CELGENEUS-163-20785-09090330

PATIENT
  Sex: Female

DRUGS (2)
  1. THALOMID [Suspect]
     Indication: DRUG USE FOR UNKNOWN INDICATION
     Route: 048
     Dates: start: 20061001
  2. THALOMID [Suspect]
     Route: 048
     Dates: start: 20050501, end: 20060101

REACTIONS (3)
  - LIVER DISORDER [None]
  - OEDEMA [None]
  - PLEURAL EFFUSION [None]
